FAERS Safety Report 5255988-6 (Version None)
Quarter: 2007Q1

REPORT INFORMATION
  Report Type: 
  Country: None (occurrence: None)
  Receive Date: 20070302
  Receipt Date: 20070302
  Transmission Date: 20070707
  Serious: Yes (Other)
  Sender: FDA-Public Use
  Company Number: None

PATIENT
  Sex: Male
  Weight: 68.0396 kg

DRUGS (1)
  1. FELODIPINE [Suspect]
     Indication: CORONARY ARTERY DISEASE
     Dosage: 5 MG   1X DAILY  PO
     Route: 048
     Dates: start: 20060627, end: 20070225

REACTIONS (5)
  - CHEST DISCOMFORT [None]
  - DISORIENTATION [None]
  - DIZZINESS [None]
  - OEDEMA PERIPHERAL [None]
  - WEIGHT DECREASED [None]
